FAERS Safety Report 5498965-2 (Version None)
Quarter: 2007Q4

REPORT INFORMATION
  Report Type: 
  Country: None (occurrence: None)
  Receive Date: 20071026
  Receipt Date: 20070510
  Transmission Date: 20080405
  Serious: No
  Sender: FDA-Public Use
  Company Number: A0650827A

PATIENT
  Age: 60 Year
  Sex: Female

DRUGS (6)
  1. ADVAIR DISKUS 100/50 [Suspect]
     Indication: ASTHMA
     Dosage: 1PUFF TWICE PER DAY
     Route: 055
     Dates: start: 20070509, end: 20070509
  2. SINGULAIR [Concomitant]
  3. BENICAR [Concomitant]
  4. ZYRTEC [Concomitant]
  5. EVISTA [Concomitant]
  6. ALBUTEROL [Concomitant]

REACTIONS (8)
  - ABNORMAL DREAMS [None]
  - BLOOD PRESSURE INCREASED [None]
  - CHEST DISCOMFORT [None]
  - HEADACHE [None]
  - HEART RATE INCREASED [None]
  - PHARYNGEAL OEDEMA [None]
  - SOMNOLENCE [None]
  - TREMOR [None]
